FAERS Safety Report 24631077 (Version 2)
Quarter: 2024Q4

REPORT INFORMATION
  Report Type: Report from Study
  Country: US (occurrence: US)
  Receive Date: 20241118
  Receipt Date: 20241126
  Transmission Date: 20250115
  Serious: Yes (Hospitalization)
  Sender: GILEAD
  Company Number: US-GILEAD-2024-0694095

PATIENT

DRUGS (11)
  1. AZTREONAM LYSINE [Suspect]
     Active Substance: AZTREONAM LYSINE
     Indication: Cystic fibrosis
     Dosage: 75MG INHALED VIA NEBULIZER THREE TIMES DAILY FOR 28 DAYS
     Route: 055
     Dates: start: 20200103
  2. BACLOFEN [Concomitant]
     Active Substance: BACLOFEN
  3. LUPRON DEPOT [Concomitant]
     Active Substance: LEUPROLIDE ACETATE
  4. BUDESONIDE [Concomitant]
     Active Substance: BUDESONIDE
  5. CARNITINE [Concomitant]
     Active Substance: CARNITINE
  6. GLYCOPYRROLATE [Concomitant]
     Active Substance: GLYCOPYRROLATE
  7. NEXIUM I.V. [Concomitant]
     Active Substance: ESOMEPRAZOLE SODIUM
  8. PEPCID [Concomitant]
     Active Substance: FAMOTIDINE
  9. SODIUM CITRATE [Concomitant]
     Active Substance: SODIUM CITRATE
  10. TRILEPTAL [Concomitant]
     Active Substance: OXCARBAZEPINE
  11. VITAMIN B1 [Concomitant]
     Active Substance: THIAMINE HYDROCHLORIDE

REACTIONS (2)
  - Surgery [Unknown]
  - Product use issue [Recovered/Resolved]
